FAERS Safety Report 7335388-5 (Version None)
Quarter: 2011Q1

REPORT INFORMATION
  Report Type: 
  Country: None (occurrence: None)
  Receive Date: 20110302
  Receipt Date: 20110302
  Transmission Date: 20110831
  Serious: No
  Sender: FDA-Public Use
  Company Number: None

PATIENT
  Age: 80 Year
  Sex: Female

DRUGS (1)
  1. METHENAMINE HIPPURATE [Suspect]
     Indication: PROPHYLAXIS URINARY TRACT INFECTION
     Dosage: 1GM TABLET 2X A DAY (FEW YEARS)

REACTIONS (2)
  - ORAL CANDIDIASIS [None]
  - STOMATITIS [None]
